FAERS Safety Report 18142555 (Version 3)
Quarter: 2025Q3

REPORT INFORMATION
  Report Type: Spontaneous
  Country: US (occurrence: US)
  Receive Date: 20200812
  Receipt Date: 20250717
  Transmission Date: 20251020
  Serious: Yes (Disabling, Other)
  Sender: NOVARTIS
  Company Number: NVSC2020US214326

PATIENT
  Age: 70 Year
  Sex: Male

DRUGS (27)
  1. BEOVU [Suspect]
     Active Substance: BROLUCIZUMAB-DBLL
     Indication: Neovascular age-related macular degeneration
     Dosage: 6 MG, QMO
     Route: 065
     Dates: start: 20191213
  2. BEOVU [Suspect]
     Active Substance: BROLUCIZUMAB-DBLL
     Dosage: 6 MG, QMO (MONTHLY FOR FIRST 3 DOSES THEN 8-12 WEEKS AFTER)
     Route: 065
     Dates: start: 20200110
  3. EYLEA [Suspect]
     Active Substance: AFLIBERCEPT
     Indication: Neovascular age-related macular degeneration
     Route: 065
     Dates: start: 20190301
  4. EYLEA [Suspect]
     Active Substance: AFLIBERCEPT
     Route: 065
     Dates: start: 20190305
  5. EYLEA [Suspect]
     Active Substance: AFLIBERCEPT
     Route: 065
     Dates: start: 20190402
  6. EYLEA [Suspect]
     Active Substance: AFLIBERCEPT
     Route: 065
     Dates: start: 20190503
  7. EYLEA [Suspect]
     Active Substance: AFLIBERCEPT
     Route: 065
     Dates: start: 20190816
  8. EYLEA [Suspect]
     Active Substance: AFLIBERCEPT
     Route: 065
     Dates: start: 20191001
  9. EYLEA [Suspect]
     Active Substance: AFLIBERCEPT
     Route: 065
     Dates: start: 20191112
  10. AVASTIN [Suspect]
     Active Substance: BEVACIZUMAB
     Indication: Neovascular age-related macular degeneration
     Route: 065
  11. AVASTIN [Suspect]
     Active Substance: BEVACIZUMAB
     Route: 065
     Dates: start: 20200522
  12. METFORMIN [Concomitant]
     Active Substance: METFORMIN HYDROCHLORIDE
     Indication: Product used for unknown indication
     Dosage: UNK, BID (MORNING AND EVENING MEALS)
     Route: 048
  13. AZOPT [Concomitant]
     Active Substance: BRINZOLAMIDE
     Indication: Product used for unknown indication
     Dosage: UNK, TID (INSTALL 1 DROP INTO AFFECTED EYE(S))
     Route: 047
     Dates: end: 20200522
  14. AZOPT [Concomitant]
     Active Substance: BRINZOLAMIDE
     Dosage: UNK, TID (INSTALL 1 DROP INNTO RIGHT EYE)
     Route: 047
     Dates: start: 20200522, end: 20200605
  15. KETOROLAC [Concomitant]
     Active Substance: KETOROLAC TROMETHAMINE
     Indication: Product used for unknown indication
     Dosage: UNK UNK, QD (INSTILL 1 DROP AT BEDTIME OD)
     Route: 047
     Dates: start: 20200421, end: 20200605
  16. OFLOXACIN [Concomitant]
     Active Substance: OFLOXACIN
     Indication: Product used for unknown indication
     Dosage: UNK, Q4H (FOR 2 DAYS INTO AFFECTED EYE(S) THEN 1 DROP FOUR TIMES DAILY FOR 5 DAYS)
     Route: 047
     Dates: end: 20200421
  17. OFLOXACIN [Concomitant]
     Active Substance: OFLOXACIN
     Dosage: 1 DF, QID (1 DROP IN RIGHT EYE)
     Route: 047
  18. PREDNISOLONE ACETATE [Concomitant]
     Active Substance: PREDNISOLONE ACETATE
     Indication: Product used for unknown indication
     Dosage: UNK, QID (INSTILL 1 DROP INTO LEFT EYE)
     Route: 047
     Dates: end: 20200508
  19. PREDNISOLONE ACETATE [Concomitant]
     Active Substance: PREDNISOLONE ACETATE
     Dosage: UNK, QID (INSTILL 1 DROP INTO LEFT EYE)
     Route: 047
     Dates: start: 20200508
  20. PREDNISOLONE ACETATE [Concomitant]
     Active Substance: PREDNISOLONE ACETATE
     Dosage: UNK, QID (INSTILL 1 DROP INTO LEFT EYE)
     Route: 047
     Dates: start: 20200508, end: 20200605
  21. PREDNISOLONE ACETATE [Concomitant]
     Active Substance: PREDNISOLONE ACETATE
     Dosage: UNK, QID (INSTILL 1 DROP INTO LEFT EYE)
     Route: 047
  22. TRUSOPT [Concomitant]
     Active Substance: DORZOLAMIDE HYDROCHLORIDE
     Indication: Product used for unknown indication
     Dosage: UNK, TID (INSTILL 1 DROP INTO RIGHT EYE)
     Route: 047
     Dates: start: 20200522, end: 20200605
  23. ACETAZOLAMIDE [Concomitant]
     Active Substance: ACETAZOLAMIDE
     Indication: Product used for unknown indication
     Dosage: 1 DF, QD
     Route: 048
     Dates: start: 20200508, end: 20200605
  24. FLUTICASONE PROPIONATE [Concomitant]
     Active Substance: FLUTICASONE PROPIONATE
     Indication: Product used for unknown indication
     Dosage: UNK UNK, QD (1 SPRAY IN EACH NOSTRIL)
     Route: 045
  25. OPCON-A [Concomitant]
     Active Substance: NAPHAZOLINE HYDROCHLORIDE\PHENIRAMINE MALEATE
     Indication: Product used for unknown indication
     Route: 065
  26. MINERALS\VITAMINS [Concomitant]
     Active Substance: MINERALS\VITAMINS
     Indication: Product used for unknown indication
     Dosage: 1 DF, BID
     Route: 048
     Dates: start: 20190816
  27. BRIMONIDINE [Concomitant]
     Active Substance: BRIMONIDINE TARTRATE
     Indication: Product used for unknown indication
     Dosage: UNK, BID (ONE DROP IN RIGHT EYE)
     Route: 065
     Dates: start: 20200416, end: 20200605

REACTIONS (34)
  - Retinal artery occlusion [Not Recovered/Not Resolved]
  - Blindness [Not Recovered/Not Resolved]
  - Visual acuity reduced [Not Recovered/Not Resolved]
  - Procedural haemorrhage [Unknown]
  - Ocular hypertension [Recovered/Resolved]
  - Retinal vascular occlusion [Not Recovered/Not Resolved]
  - Glaucoma [Unknown]
  - Anterior chamber flare [Unknown]
  - Angle closure glaucoma [Unknown]
  - Detachment of retinal pigment epithelium [Unknown]
  - Keratic precipitates [Unknown]
  - Iris adhesions [Unknown]
  - Eye pain [Recovered/Resolved with Sequelae]
  - Eye inflammation [Not Recovered/Not Resolved]
  - Iridocyclitis [Recovered/Resolved]
  - Endophthalmitis [Unknown]
  - Intraocular pressure increased [Recovered/Resolved with Sequelae]
  - Ocular hyperaemia [Unknown]
  - Visual impairment [Not Recovered/Not Resolved]
  - Insomnia [Not Recovered/Not Resolved]
  - Vitreous floaters [Recovered/Resolved]
  - Somnolence [Unknown]
  - Vertigo [Unknown]
  - Eye irritation [Not Recovered/Not Resolved]
  - Photophobia [Recovered/Resolved]
  - Ocular discomfort [Unknown]
  - Visual field defect [Unknown]
  - Disorientation [Unknown]
  - Blepharitis [Unknown]
  - Pinguecula [Unknown]
  - Vision blurred [Unknown]
  - Iritis [Unknown]
  - Corneal oedema [Not Recovered/Not Resolved]
  - Dry eye [Unknown]

NARRATIVE: CASE EVENT DATE: 20200110
